FAERS Safety Report 5704496-4 (Version None)
Quarter: 2008Q2

REPORT INFORMATION
  Report Type: 
  Country: None (occurrence: None)
  Receive Date: 20080414
  Receipt Date: 20080401
  Transmission Date: 20081010
  Serious: Yes (Other)
  Sender: FDA-Public Use
  Company Number: US-ELI_LILLY_AND_COMPANY-US200802004490

PATIENT
  Sex: Female
  Weight: 65.306 kg

DRUGS (12)
  1. FORTEO [Suspect]
     Indication: OSTEOPOROSIS
     Dosage: 20 UG, DAILY (1/D)
     Dates: start: 20071128, end: 20071218
  2. FORTEO [Suspect]
  3. ARANESP [Concomitant]
  4. OXYGEN [Concomitant]
     Indication: CHRONIC LYMPHOCYTIC LEUKAEMIA
  5. LIPITOR [Concomitant]
  6. LOTREL [Concomitant]
  7. METFORMIN HCL [Concomitant]
  8. PRILOSEC [Concomitant]
  9. SYNTHROID [Concomitant]
  10. ASPIRIN [Concomitant]
  11. XALATAN [Concomitant]
  12. ALPHAGAN [Concomitant]

REACTIONS (2)
  - FEELING ABNORMAL [None]
  - RENAL FAILURE [None]
